FAERS Safety Report 11392797 (Version 1)
Quarter: 2015Q3

REPORT INFORMATION
  Report Type: Report from Study
  Country: CA (occurrence: CA)
  Receive Date: 20150818
  Receipt Date: 20150818
  Transmission Date: 20151125
  Serious: Yes (Other)
  Sender: FDA-Public Use
  Company Number: PHHY2015CA098189

PATIENT
  Sex: Female

DRUGS (1)
  1. GLEEVEC [Suspect]
     Active Substance: IMATINIB MESYLATE
     Indication: GASTROINTESTINAL STROMAL TUMOUR
     Dosage: 100 MG, QID
     Route: 048

REACTIONS (6)
  - Musculoskeletal pain [Unknown]
  - Nasopharyngitis [Not Recovered/Not Resolved]
  - Pertussis [Not Recovered/Not Resolved]
  - Chest pain [Unknown]
  - Dysphonia [Unknown]
  - Dyspnoea [Unknown]
